FAERS Safety Report 9394794 (Version 1)
Quarter: 2013Q4

REPORT INFORMATION
  Report Type: Spontaneous
  Country: US (occurrence: None)
  Receive Date: 20130709
  Receipt Date: 20130709
  Transmission Date: 20140711
  Serious: Yes (Hospitalization)
  Sender: FDA-Public Use
  Company Number: None

PATIENT
  Age: 70 Year
  Sex: Female
  Weight: 58 kg

DRUGS (22)
  1. BENDAMUSTINE [Suspect]
     Indication: AMYLOIDOSIS
     Dosage: 144 MG; DAYS 1/2 Q28 DAYS; IV
     Route: 042
     Dates: start: 20130422, end: 20130618
  2. DEXAMETHASONE (UNKNOWN) [Suspect]
     Indication: AMYLOIDOSIS
     Dosage: 20 MG DAYS 1,8,15,22 PO
     Route: 048
     Dates: start: 20130422, end: 20130618
  3. RABEPRAZOLE [Concomitant]
  4. TORSEMIDE [Concomitant]
  5. METOLAZONE [Concomitant]
  6. SPIRONOLACTONE [Concomitant]
  7. WELLBUTRIN [Concomitant]
  8. ASPIRIN [Concomitant]
  9. SIMVASTATIN [Concomitant]
  10. VAGIFEM [Concomitant]
  11. SERTRALINE [Concomitant]
  12. MULTI VIT [Concomitant]
  13. VIT D [Concomitant]
  14. KCL [Concomitant]
  15. DULERA [Concomitant]
  16. LORAZEPAM [Concomitant]
  17. ACYLOVIR [Concomitant]
  18. COLACE [Concomitant]
  19. LACTULOSE [Concomitant]
  20. HYOSCINE [Concomitant]
  21. CIPRO [Concomitant]
  22. NEULASTA [Concomitant]

REACTIONS (6)
  - Cough [None]
  - Dyspnoea [None]
  - Haemoptysis [None]
  - Weight increased [None]
  - Pleural effusion [None]
  - Atelectasis [None]
